FAERS Safety Report 4839931-7 (Version None)
Quarter: 2005Q4

REPORT INFORMATION
  Report Type: 
  Country: None (occurrence: None)
  Receive Date: 20051129
  Receipt Date: 20051003
  Transmission Date: 20060501
  Serious: Yes (Hospitalization)
  Sender: FDA-Public Use
  Company Number: PHRM2005FR02662

PATIENT
  Age: 75 Year
  Sex: Male
  Weight: 70 kg

DRUGS (7)
  1. GLEEVEC [Suspect]
     Indication: CHRONIC MYELOID LEUKAEMIA
     Dosage: 400 MG DAILY
     Route: 048
     Dates: start: 20050315, end: 20050615
  2. FLECAINIDE ACETATE [Concomitant]
  3. DILTIAZEM HYDROCHLORIDE [Concomitant]
     Route: 048
  4. PLAVIX [Concomitant]
     Route: 048
  5. VASTEN [Concomitant]
     Route: 048
  6. OMIX [Concomitant]
     Route: 048
  7. PERMIXON [Concomitant]
     Route: 048

REACTIONS (6)
  - ALANINE AMINOTRANSFERASE INCREASED [None]
  - ANOREXIA [None]
  - ASPARTATE AMINOTRANSFERASE INCREASED [None]
  - ASTHENIA [None]
  - GAMMA-GLUTAMYLTRANSFERASE INCREASED [None]
  - HEPATITIS [None]
